FAERS Safety Report 6420178-8 (Version None)
Quarter: 2009Q4

REPORT INFORMATION
  Report Type: 
  Country: None (occurrence: None)
  Receive Date: 20091029
  Receipt Date: 20091016
  Transmission Date: 20100525
  Serious: Yes (Death)
  Sender: FDA-Public Use
  Company Number: AT-PURDUE-DEU-2009-0005318

PATIENT
  Sex: Female

DRUGS (4)
  1. SUBSTITOL RETARD 200 MG-KAPSELN [Suspect]
     Indication: DRUG WITHDRAWAL MAINTENANCE THERAPY
     Dosage: 800 MG, DAILY
  2. TRAZODONE HCL [Concomitant]
     Indication: DRUG USE FOR UNKNOWN INDICATION
  3. LEXOTANIL [Concomitant]
     Indication: DRUG USE FOR UNKNOWN INDICATION
  4. TRILEPTAL [Concomitant]

REACTIONS (2)
  - OVERDOSE [None]
  - TOXIC ENCEPHALOPATHY [None]
